APPROVED DRUG PRODUCT: ALDOMET
Active Ingredient: METHYLDOPA
Strength: 250MG/5ML
Dosage Form/Route: SUSPENSION;ORAL
Application: N018389 | Product #001
Applicant: MERCK AND CO INC
Approved: Approved Prior to Jan 1, 1982 | RLD: No | RS: No | Type: DISCN